FAERS Safety Report 6662564-7 (Version None)
Quarter: 2010Q1

REPORT INFORMATION
  Report Type: 
  Country: None (occurrence: None)
  Receive Date: 20100329
  Receipt Date: 20100316
  Transmission Date: 20100710
  Serious: No
  Sender: FDA-Public Use
  Company Number: RB-02525-2010

PATIENT
  Age: 53 Year
  Sex: Male

DRUGS (7)
  1. SUBUTEX [Suspect]
     Indication: DRUG DEPENDENCE
     Dosage: SUBLINGUAL TABLET 3MG QD, 6 MG QD, 2 MG TID,
     Dates: start: 20081101, end: 20100101
  2. TEMGESIC(BUPRENORPHINE) [Suspect]
     Indication: PAIN
     Dosage: 0.4 MG QID
     Route: 060
     Dates: end: 20100101
  3. FLUPIRTINE(FLUPIRTINE) [Concomitant]
  4. GABAPENTIN [Concomitant]
  5. DIAZEPAM [Concomitant]
  6. MIRTAZAPINE [Concomitant]
  7. SUBOXONE [Concomitant]

REACTIONS (2)
  - FATIGUE [None]
  - THERAPEUTIC RESPONSE UNEXPECTED [None]
